FAERS Safety Report 7969835-2 (Version None)
Quarter: 2011Q4

REPORT INFORMATION
  Report Type: 
  Country: None (occurrence: None)
  Receive Date: 20111121
  Receipt Date: 20110811
  Transmission Date: 20120403
  Serious: No
  Sender: FDA-Public Use
  Company Number: 1000022810

PATIENT
  Age: 80 Year
  Sex: Female

DRUGS (6)
  1. OMEPRAZOLE [Concomitant]
  2. VIIBRYD [Suspect]
     Indication: DEPRESSION
  3. ASACOL (MESALAZINE) (MESALAZINE) [Concomitant]
  4. AMBIEN [Concomitant]
  5. LOVASTATIN (LOVASTATIN) (LOVASTATIN) [Concomitant]
  6. DICLOFENAC SODIUM [Concomitant]

REACTIONS (2)
  - FLANK PAIN [None]
  - NAUSEA [None]
